FAERS Safety Report 7556610-6 (Version None)
Quarter: 2011Q2

REPORT INFORMATION
  Report Type: 
  Country: None (occurrence: None)
  Receive Date: 20110620
  Receipt Date: 20110610
  Transmission Date: 20111010
  Serious: Yes (Hospitalization, Other)
  Sender: FDA-Public Use
  Company Number: US-AMGEN-USASP2011029949

PATIENT
  Age: 67 Year
  Sex: Female

DRUGS (1)
  1. ENBREL [Suspect]
     Indication: RHEUMATOID ARTHRITIS
     Dates: start: 19980101

REACTIONS (8)
  - AGEUSIA [None]
  - FOOT DEFORMITY [None]
  - INJECTION SITE PAIN [None]
  - HAND DEFORMITY [None]
  - RHEUMATOID LUNG [None]
  - ASTHMA [None]
  - ANOSMIA [None]
  - SINUSITIS [None]
